FAERS Safety Report 4377358-5 (Version None)
Quarter: 2004Q2

REPORT INFORMATION
  Report Type: 
  Country: None (occurrence: None)
  Receive Date: 20040609
  Receipt Date: 20040401
  Transmission Date: 20050107
  Serious: No
  Sender: FDA-Public Use
  Company Number: 2004207616US

PATIENT
  Age: 56 Year
  Sex: Female

DRUGS (1)
  1. BEXTRA [Suspect]
     Dosage: 10 MG QD
     Route: 065
     Dates: start: 20040329

REACTIONS (2)
  - DRY MOUTH [None]
  - PRODUCTIVE COUGH [None]
